FAERS Safety Report 21817183 (Version 3)
Quarter: 2023Q2

REPORT INFORMATION
  Report Type: Spontaneous
  Country: PL (occurrence: PL)
  Receive Date: 20230104
  Receipt Date: 20230410
  Transmission Date: 20230721
  Serious: Yes (Other)
  Sender: FDA-Public Use
  Company Number: PL-VIPHPROD-KWE-104-2022

PATIENT
  Age: 41 Year
  Sex: Male

DRUGS (18)
  1. OMEPRAZOLE [Suspect]
     Active Substance: OMEPRAZOLE
     Indication: Pancreatitis chronic
     Dosage: 40 MG, QD
     Route: 048
  2. OMEPRAZOLE [Suspect]
     Active Substance: OMEPRAZOLE
     Indication: Visceral pain
  3. OMEPRAZOLE [Interacting]
     Active Substance: OMEPRAZOLE
     Indication: Visceral pain
     Dosage: 40 MG, QD
     Route: 048
  4. ATORVASTATIN [Interacting]
     Active Substance: ATORVASTATIN
     Indication: Dyslipidaemia
     Dosage: 40 MG, QD
     Route: 048
  5. QUETIAPINE [Interacting]
     Active Substance: QUETIAPINE
     Indication: Anxiety
     Dosage: 100 MG, QD
     Route: 048
  6. QUETIAPINE [Interacting]
     Active Substance: QUETIAPINE
     Indication: Sleep disorder
  7. QUETIAPINE [Interacting]
     Active Substance: QUETIAPINE
     Indication: Insomnia
  8. IBUPROFEN [Interacting]
     Active Substance: IBUPROFEN
     Indication: Pancreatitis
     Dosage: 1800 MG, QD
     Route: 048
  9. IBUPROFEN [Interacting]
     Active Substance: IBUPROFEN
     Indication: Pancreatitis chronic
     Dosage: 1800 MG, QD
     Route: 048
  10. IBUPROFEN [Interacting]
     Active Substance: IBUPROFEN
     Indication: Visceral pain
     Dosage: 1800 MG, QD
     Route: 048
  11. TRAMADOL [Interacting]
     Active Substance: TRAMADOL
     Indication: Visceral pain
     Dosage: 200 MG, QD
     Route: 048
  12. TRAMADOL [Interacting]
     Active Substance: TRAMADOL
     Dosage: 300 MG, QD
     Route: 048
  13. TRAMADOL [Interacting]
     Active Substance: TRAMADOL
     Indication: Pancreatitis chronic
     Dosage: FIRST 200 MG/DAY, THEN 300 MG/DAY
     Route: 048
  14. IBUPROFEN [Interacting]
     Active Substance: IBUPROFEN
     Indication: Visceral pain
     Dosage: 1800 MG, QD
     Route: 048
  15. PITAVASTATIN [Concomitant]
     Active Substance: PITAVASTATIN
     Dosage: UNK
  16. PREGABALIN [Concomitant]
     Active Substance: PREGABALIN
     Dosage: 75 MILLIGRAM, PM
  17. BUPRENORPHINE [Concomitant]
     Active Substance: BUPRENORPHINE
     Dosage: 17.5 MICROGRAM, QH (NEW PATCH APPLIED EVERY 72 HOURS)
  18. METAMIZOLE [Concomitant]
     Active Substance: METAMIZOLE
     Dosage: 1000 MILLIGRAM (UP TO A MAXIMUM DOSE OF 5000 MG/D IF HIS PAIN EXACERBATED)

REACTIONS (18)
  - Inadequate analgesia [Recovered/Resolved]
  - Pain [Recovered/Resolved]
  - Sleep disorder [Recovered/Resolved]
  - Insomnia [Recovering/Resolving]
  - Visceral pain [Recovering/Resolving]
  - Anxiety [Recovered/Resolved]
  - Drug ineffective [Unknown]
  - Drug interaction [Recovered/Resolved]
  - Fear [Recovering/Resolving]
  - Overdose [Recovered/Resolved]
  - Dysbiosis [Unknown]
  - Off label use [Unknown]
  - Product use in unapproved indication [Unknown]
  - Drug level increased [Unknown]
  - Abdominal pain upper [Recovered/Resolved]
  - Seizure [Recovered/Resolved]
  - Poor quality sleep [Recovering/Resolving]
  - Drug interaction [Recovering/Resolving]
